FAERS Safety Report 14499129 (Version 1)
Quarter: 2018Q1

REPORT INFORMATION
  Report Type: Spontaneous
  Country: US (occurrence: US)
  Receive Date: 20180207
  Receipt Date: 20180207
  Transmission Date: 20180509
  Serious: No
  Sender: FDA-Public Use
  Company Number: US-JAZZ-2017-US-003630

PATIENT
  Sex: Male

DRUGS (6)
  1. PRIALT [Suspect]
     Active Substance: ZICONOTIDE ACETATE
     Dosage: 0.068 ?G, QH
     Route: 037
     Dates: start: 20170117
  2. BACLOFEN. [Suspect]
     Active Substance: BACLOFEN
     Dosage: 58.35 ?G, QH
     Route: 037
     Dates: start: 20170117
  3. PRIALT [Suspect]
     Active Substance: ZICONOTIDE ACETATE
     Dosage: 0.068 ?G, QH
     Route: 037
     Dates: start: 20161219
  4. BACLOFEN. [Suspect]
     Active Substance: BACLOFEN
     Dosage: 58.35 ?G, QH
     Route: 037
     Dates: start: 20161219
  5. PRIALT [Suspect]
     Active Substance: ZICONOTIDE ACETATE
     Indication: PRODUCT USED FOR UNKNOWN INDICATION
     Dosage: 0.068?G, QH
     Route: 037
     Dates: start: 20161123
  6. BACLOFEN. [Suspect]
     Active Substance: BACLOFEN
     Indication: PRODUCT USED FOR UNKNOWN INDICATION
     Dosage: 58.35 ?G QH
     Route: 037
     Dates: start: 20161123

REACTIONS (2)
  - Device issue [Unknown]
  - Muscle spasticity [Recovered/Resolved]
